FAERS Safety Report 5859343-7 (Version None)
Quarter: 2008Q3

REPORT INFORMATION
  Report Type: 
  Country: None (occurrence: None)
  Receive Date: 20080825
  Receipt Date: 20080820
  Transmission Date: 20090109
  Serious: Yes (Hospitalization)
  Sender: FDA-Public Use
  Company Number: 6045067

PATIENT
  Age: 80 Year
  Sex: Male

DRUGS (7)
  1. LEVOTHYROXINE SODIUM [Suspect]
     Indication: DRUG USE FOR UNKNOWN INDICATION
     Dosage: 1 DOSAGE FORMS (1 DOSAGE FORMS, 1D)  ORAL
     Route: 048
  2. BISOPROLOL FUMARATE [Suspect]
     Indication: DRUG USE FOR UNKNOWN INDICATION
     Dosage: 2 DOSAGE FORMS (2 DOSAGE FORMS, 1 D.)  ORAL
     Route: 048
  3. LASILIX SPECIAL  (FUROSEMIDE) [Suspect]
     Indication: DRUG USE FOR UNKNOWN INDICATION
     Dosage: 0.5 DOSAGE FORMS (0.5 DOSAGE FORMS, 1 D)   ORAL;  (LONG TERM)
     Route: 048
  4. HEPARIN [Concomitant]
     Indication: DRUG USE FOR UNKNOWN INDICATION
     Dosage: NTRAVENOUS (NOT OTHERWISE SPECIFIED)
     Route: 042
     Dates: start: 20080325, end: 20080328
  5. CORDARONE [Suspect]
     Indication: DRUG USE FOR UNKNOWN INDICATION
     Dosage: 1 DOSAGE FORMS (1 DOSAGE FORMS, 1 ID);  ORAL; (LONG TERM)
     Route: 048
  6. XANAX [Suspect]
     Indication: DRUG USE FOR UNKNOWN INDICATION
     Dosage: 4 DOSAGE FORMS (4 DOSAGE FORMS, 1D);  ORAL ; (LONG TERM)
  7. INSULIN [Suspect]
     Indication: DRUG USE FOR UNKNOWN INDICATION
     Dates: start: 20080325, end: 20080328

REACTIONS (4)
  - HEPATIC NEOPLASM [None]
  - PRURITUS [None]
  - URTICARIA [None]
  - VENOUS THROMBOSIS [None]
